FAERS Safety Report 7943478-9 (Version None)
Quarter: 2011Q4

REPORT INFORMATION
  Report Type: 
  Country: None (occurrence: None)
  Receive Date: 20111128
  Receipt Date: 20111114
  Transmission Date: 20120403
  Serious: Yes (Hospitalization, Other)
  Sender: FDA-Public Use
  Company Number: PHHY2009JP24305

PATIENT
  Sex: Female
  Weight: 43 kg

DRUGS (12)
  1. CARNACULIN [Concomitant]
     Dosage: 150 IU
     Route: 048
     Dates: start: 20051101, end: 20081020
  2. NEORAL [Suspect]
     Route: 048
  3. MERISLON [Concomitant]
     Dosage: 18 MG,
     Route: 048
     Dates: start: 20051101, end: 20080923
  4. DESFERAL [Concomitant]
     Dates: start: 20060509, end: 20080805
  5. PREDNISOLONE [Concomitant]
  6. URSO 250 [Concomitant]
     Dosage: 300 MG,
     Route: 048
     Dates: start: 20080913, end: 20081103
  7. OMEPRAZOLE [Concomitant]
     Dosage: 20 MG,
     Route: 048
     Dates: start: 20080909
  8. EXJADE [Suspect]
     Indication: IRON OVERLOAD
     Dosage: 1000 MG/DAY
     Route: 048
     Dates: start: 20080806, end: 20080902
  9. EXJADE [Suspect]
     Dosage: 1000 MG/DAY
     Route: 048
     Dates: start: 20080925, end: 20081020
  10. BASEN [Concomitant]
     Dosage: 0.9 MG,
     Dates: start: 20051101, end: 20090408
  11. MAGMITT [Concomitant]
     Dosage: 1 G,
     Route: 048
     Dates: start: 20051101
  12. HALCION [Concomitant]
     Dosage: 0.25 MG,
     Route: 048
     Dates: start: 20051101

REACTIONS (6)
  - SERUM FERRITIN INCREASED [None]
  - ERYTHROPHAGOCYTOSIS [None]
  - LIVER DISORDER [None]
  - HISTIOCYTOSIS HAEMATOPHAGIC [None]
  - NEOPLASM MALIGNANT [None]
  - BLOOD PRESSURE INCREASED [None]
